FAERS Safety Report 5931346-3 (Version None)
Quarter: 2008Q4

REPORT INFORMATION
  Report Type: 
  Country: None (occurrence: None)
  Receive Date: 20081024
  Receipt Date: 20081024
  Transmission Date: 20090506
  Serious: Yes (Other)
  Sender: FDA-Public Use
  Company Number: None

PATIENT
  Age: 50 Year
  Sex: Female
  Weight: 70.3075 kg

DRUGS (2)
  1. VAGIFEM [Suspect]
     Indication: ATROPHIC VULVOVAGINITIS
     Dosage: 1 TABLET 3 TIMES PER WEEK VAG
     Route: 067
     Dates: start: 20060110, end: 20080921
  2. VAGIFEM [Suspect]

REACTIONS (2)
  - ATROPHIC VULVOVAGINITIS [None]
  - DRUG INEFFECTIVE [None]
